FAERS Safety Report 14309257 (Version 1)
Quarter: 2017Q4

REPORT INFORMATION
  Report Type: Report from Study
  Country: AU (occurrence: AU)
  Receive Date: 20171220
  Receipt Date: 20171220
  Transmission Date: 20180321
  Serious: Yes (Other)
  Sender: FDA-Public Use
  Company Number: AU-TOLMAR, INC.-2017AU017172

PATIENT
  Sex: Male

DRUGS (14)
  1. QUINATE                            /00032104/ [Concomitant]
  2. OSTEMOL [Concomitant]
  3. ELIGARD [Suspect]
     Active Substance: LEUPROLIDE ACETATE
     Indication: PROSTATE CANCER
     Dosage: 22.5 MG, Q3MONTHS
     Route: 065
     Dates: start: 20161212
  4. LORSTAT [Concomitant]
     Active Substance: ATORVASTATIN CALCIUM
  5. DIABEX [Concomitant]
     Active Substance: METFORMIN HYDROCHLORIDE
  6. LYRICA [Concomitant]
     Active Substance: PREGABALIN
  7. LASIX [Concomitant]
     Active Substance: FUROSEMIDE
  8. TWYNSTA [Concomitant]
     Active Substance: AMLODIPINE BESYLATE\TELMISARTAN
  9. VITAMIN D                          /00107901/ [Concomitant]
     Active Substance: ERGOCALCIFEROL
  10. OXYCONTIN [Concomitant]
     Active Substance: OXYCODONE HYDROCHLORIDE
  11. EFEXOR [Concomitant]
     Active Substance: VENLAFAXINE HYDROCHLORIDE
  12. PROGOUT [Concomitant]
     Active Substance: ALLOPURINOL
  13. ALPHAPRESS                         /00000101/ [Concomitant]
  14. RESTAVIT [Concomitant]

REACTIONS (3)
  - Blood glucose abnormal [Unknown]
  - Confusional state [Unknown]
  - Vision blurred [Unknown]
